FAERS Safety Report 9474602 (Version 1)
Quarter: 2013Q3

REPORT INFORMATION
  Report Type: Spontaneous
  Country: NL (occurrence: NL)
  Receive Date: 20130823
  Receipt Date: 20130823
  Transmission Date: 20140515
  Serious: Yes (Hospitalization)
  Sender: FDA-Public Use
  Company Number: NL-GLAXOSMITHKLINE-B0916781A

PATIENT
  Age: 64 Year
  Sex: Female
  Weight: 73 kg

DRUGS (2)
  1. DUTASTERIDE [Suspect]
     Indication: ANDROGENETIC ALOPECIA
     Dosage: .15MG PER DAY
     Route: 048
     Dates: start: 20071216
  2. METOPROLOL [Concomitant]
     Dosage: 50MG PER DAY
     Route: 048
     Dates: start: 19970101, end: 20130809

REACTIONS (2)
  - Breast cancer [Recovered/Resolved]
  - Off label use [Unknown]
